FAERS Safety Report 5960943-4 (Version None)
Quarter: 2008Q4

REPORT INFORMATION
  Report Type: 
  Country: None (occurrence: None)
  Receive Date: 20081119
  Receipt Date: 20081103
  Transmission Date: 20090506
  Serious: Yes (Other)
  Sender: FDA-Public Use
  Company Number: 8039276

PATIENT
  Sex: Female

DRUGS (3)
  1. KEPPRA [Suspect]
  2. CARBAMAZEPINE [Concomitant]
  3. VALPROATE SODIUM [Concomitant]

REACTIONS (2)
  - PERIODONTITIS [None]
  - TOOTH LOSS [None]
